FAERS Safety Report 21118032 (Version 2)
Quarter: 2022Q3

REPORT INFORMATION
  Report Type: Report from Study
  Country: IT (occurrence: None)
  Receive Date: 20220722
  Receipt Date: 20220914
  Transmission Date: 20221026
  Serious: Yes (Hospitalization)
  Sender: FDA-Public Use
  Company Number: IT-ROCHE-3134443

PATIENT
  Age: 51 Year
  Sex: Female
  Weight: 57 kg

DRUGS (3)
  1. ATEZOLIZUMAB [Suspect]
     Active Substance: ATEZOLIZUMAB
     Indication: Triple negative breast cancer
     Dosage: DATE OF LAST DOSE PRIOR TO AE: 13/JAN/2022?ON DAYS 1 AND 15 OF EACH 28-DAY CYCLE
     Route: 041
     Dates: start: 20220113
  2. CARBOPLATIN [Suspect]
     Active Substance: CARBOPLATIN
     Indication: Triple negative breast cancer
     Dosage: DATE OF LAST DOSE PRIOR TO AE: 20/JAN/2022?ON DAYS 1, 8, AND 15 OF EACH 28-DAY CYCLE
     Route: 042
     Dates: start: 20220113
  3. PACLITAXEL [Suspect]
     Active Substance: PACLITAXEL
     Indication: Triple negative breast cancer
     Dosage: DATE OF LAST DOSE PRIOR TO AE: 20/JAN/2022?ON DAYS 1, 8, AND 15 OF EACH 28-DAY CYCLE
     Route: 042
     Dates: start: 20220113

REACTIONS (4)
  - Amylase increased [Not Recovered/Not Resolved]
  - Lipase increased [Not Recovered/Not Resolved]
  - Abdominal pain [Not Recovered/Not Resolved]
  - Autoimmune pancreatitis [Not Recovered/Not Resolved]

NARRATIVE: CASE EVENT DATE: 20220126
